FAERS Safety Report 8556910-7 (Version None)
Quarter: 2012Q3

REPORT INFORMATION
  Report Type: 
  Country: None (occurrence: None)
  Receive Date: 20120801
  Receipt Date: 20120711
  Transmission Date: 20120928
  Serious: No
  Sender: FDA-Public Use
  Company Number: US-009507513-1207USA003356

PATIENT

DRUGS (1)
  1. IMPLANON [Suspect]
     Dosage: UNK, UNKNOWN
     Dates: start: 20120701

REACTIONS (2)
  - HYPOAESTHESIA [None]
  - PAIN [None]
